FAERS Safety Report 6305629-1 (Version None)
Quarter: 2009Q3

REPORT INFORMATION
  Report Type: 
  Country: None (occurrence: None)
  Receive Date: 20090806
  Receipt Date: 20090726
  Transmission Date: 20100115
  Serious: Yes (Death, Hospitalization, Other)
  Sender: FDA-Public Use
  Company Number: CERZ-11217

PATIENT
  Age: 43 Year
  Sex: Male
  Weight: 50 kg

DRUGS (2)
  1. CEREZYME [Suspect]
     Indication: GAUCHER'S DISEASE
     Dosage: 60 U/KG, Q2W, INTRAVENOUS
     Route: 042
     Dates: start: 20021210, end: 20061101
  2. CEREZYME [Suspect]
     Indication: GAUCHER'S DISEASE
     Dosage: 60 U/KG, Q2W, INTRAVENOUS
     Route: 042
     Dates: start: 20070810, end: 20070101

REACTIONS (6)
  - ABDOMINAL DISCOMFORT [None]
  - BLADDER CANCER RECURRENT [None]
  - CONVULSION [None]
  - DISEASE PROGRESSION [None]
  - GAUCHER'S DISEASE [None]
  - NEUROLOGICAL SYMPTOM [None]
